FAERS Safety Report 10152734 (Version 1)
Quarter: 2014Q2

REPORT INFORMATION
  Report Type: Spontaneous
  Country: US (occurrence: None)
  Receive Date: 20140502
  Receipt Date: 20140502
  Transmission Date: 20141212
  Serious: Yes (Hospitalization)
  Sender: FDA-Public Use
  Company Number: None

PATIENT
  Age: 60 Year
  Sex: Male
  Weight: 114 kg

DRUGS (2)
  1. 5-FU [Suspect]
     Indication: HEAD AND NECK CANCER
     Dates: start: 20140406, end: 20140425
  2. HYDROXYUREA [Suspect]
     Indication: HEAD AND NECK CANCER
     Dates: start: 20140406, end: 20140425

REACTIONS (5)
  - Mucosal inflammation [None]
  - Hypophagia [None]
  - Dehydration [None]
  - Pyrexia [None]
  - Infection [None]
